FAERS Safety Report 5843587-4 (Version None)
Quarter: 2008Q3

REPORT INFORMATION
  Report Type: 
  Country: None (occurrence: None)
  Receive Date: 20080813
  Receipt Date: 20080522
  Transmission Date: 20090109
  Serious: No
  Sender: FDA-Public Use
  Company Number: A0729219A

PATIENT
  Age: 50 Year
  Sex: Male

DRUGS (5)
  1. COREG CR [Suspect]
     Indication: HYPERTENSION
     Dosage: 20MG PER DAY
     Route: 048
     Dates: start: 20080501, end: 20080501
  2. AMITRIPTYLINE HCL [Concomitant]
  3. NEURONTIN [Concomitant]
  4. VALIUM [Concomitant]
  5. NADOLOL [Concomitant]

REACTIONS (5)
  - DEPRESSION [None]
  - DIZZINESS [None]
  - MIGRAINE [None]
  - NERVOUSNESS [None]
  - WEIGHT DECREASED [None]
